FAERS Safety Report 17971045 (Version 2)
Quarter: 2020Q4

REPORT INFORMATION
  Report Type: Report from Study
  Country: US (occurrence: US)
  Receive Date: 20200701
  Receipt Date: 20201130
  Transmission Date: 20210113
  Serious: No
  Sender: FDA-Public Use
  Company Number: US-AGIOS-2006US02010

PATIENT

DRUGS (5)
  1. GILTERITINIB [Concomitant]
     Active Substance: GILTERITINIB
     Dosage: 2 DF
     Route: 048
  2. GILTERITINIB [Concomitant]
     Active Substance: GILTERITINIB
     Indication: ACUTE MYELOID LEUKAEMIA
     Dosage: 120 MILLIGRAM, QD
     Route: 048
     Dates: start: 20191114
  3. GILTERITINIB [Concomitant]
     Active Substance: GILTERITINIB
     Dosage: 120 MILLIGRAM, QD
     Route: 048
  4. TIBSOVO [Suspect]
     Active Substance: IVOSIDENIB
     Indication: PRODUCT USED FOR UNKNOWN INDICATION
  5. TIBSOVO [Suspect]
     Active Substance: IVOSIDENIB
     Dosage: 40 MILLIGRAM, QD

REACTIONS (4)
  - Fatigue [Unknown]
  - Hepatic enzyme increased [Unknown]
  - Bone scan abnormal [Unknown]
  - Magnetic resonance imaging abnormal [Unknown]
